FAERS Safety Report 11073643 (Version 1)
Quarter: 2015Q2

REPORT INFORMATION
  Report Type: Spontaneous
  Country: US (occurrence: US)
  Receive Date: 20150428
  Receipt Date: 20150428
  Transmission Date: 20150821
  Serious: Yes (Other)
  Sender: FDA-Public Use
  Company Number: PHHY2015US050363

PATIENT
  Age: 72 Year
  Sex: Female

DRUGS (4)
  1. BUPIVACAINE [Suspect]
     Active Substance: BUPIVACAINE
     Indication: CANCER SURGERY
     Route: 050
  2. HYALURONIDASE [Suspect]
     Active Substance: HYALURONIDASE
     Indication: CANCER SURGERY
     Route: 050
  3. LIDOCAINE. [Suspect]
     Active Substance: LIDOCAINE
     Indication: CANCER SURGERY
     Route: 050
  4. EPINEPHRINE. [Suspect]
     Active Substance: EPINEPHRINE
     Indication: CANCER SURGERY
     Route: 050

REACTIONS (3)
  - Lagophthalmos [Not Recovered/Not Resolved]
  - Anaesthetic complication [Not Recovered/Not Resolved]
  - Ophthalmoplegia [Not Recovered/Not Resolved]
